FAERS Safety Report 9356070 (Version 1)
Quarter: 2013Q2

REPORT INFORMATION
  Report Type: Spontaneous
  Country: US (occurrence: US)
  Receive Date: 20130619
  Receipt Date: 20130619
  Transmission Date: 20140414
  Serious: Yes (Hospitalization, Other)
  Sender: FDA-Public Use
  Company Number: US-ASTRAZENECA-2013SE42123

PATIENT
  Age: 46 Year
  Sex: Female
  Weight: 46.3 kg

DRUGS (6)
  1. ENTOCORT [Suspect]
     Indication: CROHN^S DISEASE
     Route: 048
  2. PRILOSEC [Suspect]
     Indication: ANTACID THERAPY
     Route: 048
  3. HUMIRA [Suspect]
     Indication: CROHN^S DISEASE
     Route: 065
     Dates: start: 201211, end: 201301
  4. REMICADE [Suspect]
     Indication: CROHN^S DISEASE
     Route: 065
     Dates: start: 201301
  5. IMURAN [Concomitant]
     Indication: CROHN^S DISEASE
  6. VITAMIN [Concomitant]

REACTIONS (7)
  - Abdominal distension [Unknown]
  - Colon neoplasm [Unknown]
  - Abdominal pain [Unknown]
  - Vomiting [Unknown]
  - Dyspnoea [Unknown]
  - Malaise [Unknown]
  - Drug ineffective [Unknown]
